FAERS Safety Report 15135236 (Version 1)
Quarter: 2018Q3

REPORT INFORMATION
  Report Type: Report from Study
  Country: CA (occurrence: CA)
  Receive Date: 20180712
  Receipt Date: 20180712
  Transmission Date: 20181010
  Serious: Yes (Other)
  Sender: FDA-Public Use
  Company Number: CA-GLAXOSMITHKLINE-CA2018GSK106189

PATIENT
  Age: 61 Year
  Sex: Female

DRUGS (3)
  1. MEPOLIZUMAB [Suspect]
     Active Substance: MEPOLIZUMAB
     Indication: ASTHMA
     Dosage: 100 MG, Z
     Route: 042
  2. BROMAZEPAM [Suspect]
     Active Substance: BROMAZEPAM
     Indication: PRODUCT USED FOR UNKNOWN INDICATION
     Dosage: UNK
  3. CLONAZEPAM. [Suspect]
     Active Substance: CLONAZEPAM
     Indication: PRODUCT USED FOR UNKNOWN INDICATION
     Dosage: UNK

REACTIONS (9)
  - Sleep apnoea syndrome [Unknown]
  - Back pain [Unknown]
  - Dysphonia [Unknown]
  - Diabetes mellitus [Unknown]
  - Dyspnoea [Unknown]
  - Gait disturbance [Unknown]
  - Contusion [Unknown]
  - Arrhythmia [Unknown]
  - Panic attack [Unknown]

NARRATIVE: CASE EVENT DATE: 20180301
